FAERS Safety Report 9782896 (Version 1)
Quarter: 2013Q4

REPORT INFORMATION
  Report Type: Spontaneous
  Country: US (occurrence: None)
  Receive Date: 20131224
  Receipt Date: 20131224
  Transmission Date: 20140711
  Serious: No
  Sender: FDA-Public Use
  Company Number: None

PATIENT
  Age: 52 Year
  Sex: Female
  Weight: 89.81 kg

DRUGS (2)
  1. HYDROXYCHLOROQUINE [Suspect]
     Indication: RHEUMATOID ARTHRITIS
     Dosage: 1 PILL
     Route: 048
     Dates: start: 20131220, end: 20131220
  2. METFORMIN [Concomitant]

REACTIONS (1)
  - Rash pruritic [None]
